FAERS Safety Report 8607786-0 (Version None)
Quarter: 2012Q3

REPORT INFORMATION
  Report Type: 
  Country: None (occurrence: None)
  Receive Date: 20120821
  Receipt Date: 20120816
  Transmission Date: 20120928
  Serious: Yes (Hospitalization, Other)
  Sender: FDA-Public Use
  Company Number: PHHY2010AU28161

PATIENT
  Sex: Male

DRUGS (10)
  1. CLOZARIL [Suspect]
     Dosage: 800 MG, UNK
     Dates: start: 20120816
  2. HYOSCINE HBR HYT [Concomitant]
     Indication: SALIVARY HYPERSECRETION
     Dosage: 450 UG, (NOCTE)
     Route: 060
  3. CLOZARIL [Suspect]
     Dosage: 900 MG, UNK
     Dates: start: 20100901
  4. ROSUVASTATIN [Concomitant]
     Indication: BLOOD CHOLESTEROL INCREASED
     Dosage: 5 MG, (MANE)
     Route: 048
  5. OMEPRAZOLE [Concomitant]
     Indication: GASTROOESOPHAGEAL REFLUX DISEASE
     Dosage: 20 MG, MANE
     Route: 048
  6. CLOZARIL [Suspect]
     Indication: SCHIZOAFFECTIVE DISORDER
     Dosage: 900 MG, UNK
     Dates: start: 20010801
  7. CLOZARIL [Suspect]
     Dosage: 900 MG, UNK
     Route: 048
     Dates: start: 20120807
  8. VALPROATE SODIUM [Concomitant]
     Dosage: 500 MG, BID
  9. CITALOPRAM HYDROBROMIDE [Concomitant]
     Indication: DEPRESSION
     Dosage: 60 MG, MANE
     Route: 048
  10. QUETIAPINE [Concomitant]
     Indication: SCHIZOAFFECTIVE DISORDER
     Dosage: 600 MG/ DAY

REACTIONS (11)
  - SCHIZOPHRENIA [None]
  - AGGRESSION [None]
  - BLOOD GLUCOSE INCREASED [None]
  - PSYCHOTIC DISORDER [None]
  - ABNORMAL BEHAVIOUR [None]
  - GLYCOSYLATED HAEMOGLOBIN INCREASED [None]
  - HALLUCINATION, AUDITORY [None]
  - VITAMIN D DECREASED [None]
  - ANTIPSYCHOTIC DRUG LEVEL INCREASED [None]
  - DELUSIONAL PERCEPTION [None]
  - PARANOIA [None]
